FAERS Safety Report 6349064-9 (Version None)
Quarter: 2009Q3

REPORT INFORMATION
  Report Type: 
  Country: None (occurrence: None)
  Receive Date: 20090911
  Receipt Date: 20090907
  Transmission Date: 20100115
  Serious: Yes (Hospitalization)
  Sender: FDA-Public Use
  Company Number: GB-JNJFOC-20090902385

PATIENT
  Age: 14 Year
  Sex: Female
  Weight: 49 kg

DRUGS (1)
  1. OXYBUTYNIN CHLORIDE [Suspect]
     Indication: DRUG USE FOR UNKNOWN INDICATION
     Route: 048
     Dates: start: 20090527, end: 20090611

REACTIONS (6)
  - ABDOMINAL PAIN [None]
  - DRY SKIN [None]
  - FATIGUE [None]
  - MALAISE [None]
  - PRODUCT QUALITY ISSUE [None]
  - SOMNOLENCE [None]
